FAERS Safety Report 4602394-0 (Version None)
Quarter: 2005Q1

REPORT INFORMATION
  Report Type: 
  Country: None (occurrence: None)
  Receive Date: 20050307
  Receipt Date: 20050218
  Transmission Date: 20050727
  Serious: Yes (Other)
  Sender: FDA-Public Use
  Company Number: 2005021975

PATIENT
  Sex: Male
  Weight: 108.8633 kg

DRUGS (2)
  1. CELEBREX [Suspect]
     Indication: OSTEOARTHRITIS
     Dosage: 400 MG (200 MG, 2 IN 1 D), ORAL
     Route: 048
  2. LEFLUNOMIDE [Concomitant]

REACTIONS (7)
  - ARTHRITIS [None]
  - BONE EROSION [None]
  - CONDITION AGGRAVATED [None]
  - DRUG EFFECT DECREASED [None]
  - KNEE DEFORMITY [None]
  - OEDEMA PERIPHERAL [None]
  - OSTEOARTHRITIS [None]
